FAERS Safety Report 5334540-8 (Version None)
Quarter: 2007Q2

REPORT INFORMATION
  Report Type: 
  Country: None (occurrence: None)
  Receive Date: 20070522
  Receipt Date: 20070509
  Transmission Date: 20071010
  Serious: Yes (Hospitalization)
  Sender: FDA-Public Use
  Company Number: CERZ-11697

PATIENT
  Age: 45 Year
  Sex: Male

DRUGS (1)
  1. CEREZYME [Suspect]
     Indication: GAUCHER'S DISEASE
     Dosage: 54 U/KG Q2WKS IV
     Route: 042
     Dates: start: 20000727

REACTIONS (1)
  - NEPHROLITHIASIS [None]
